FAERS Safety Report 7221033-6 (Version None)
Quarter: 2011Q1

REPORT INFORMATION
  Report Type: 
  Country: None (occurrence: None)
  Receive Date: 20110112
  Receipt Date: 20110107
  Transmission Date: 20110831
  Serious: Yes (Other)
  Sender: FDA-Public Use
  Company Number: US-PFIZER INC-2011004895

PATIENT
  Sex: Male
  Weight: 69 kg

DRUGS (4)
  1. NORVASC [Suspect]
     Indication: HYPERTENSION
     Dosage: 5 MG, 1X/DAY
     Route: 048
     Dates: start: 20101227, end: 20101230
  2. CELEBREX [Concomitant]
     Dosage: 200 MG, 1X/DAY
  3. TOPROL-XL [Concomitant]
     Indication: HYPERTENSION
     Dosage: 100 MG, 2X/DAY
  4. LIPITOR [Concomitant]
     Indication: HYPERCHOLESTEROLAEMIA
     Dosage: 20 MG, UNK

REACTIONS (3)
  - MUSCULOSKELETAL PAIN [None]
  - IDIOSYNCRATIC DRUG REACTION [None]
  - MUSCULOSKELETAL STIFFNESS [None]
